FAERS Safety Report 10497889 (Version 1)
Quarter: 2014Q4

REPORT INFORMATION
  Report Type: Spontaneous
  Country: US (occurrence: None)
  Receive Date: 20141003
  Receipt Date: 20141003
  Transmission Date: 20150528
  Serious: Yes (Hospitalization)
  Sender: FDA-Public Use
  Company Number: None

PATIENT
  Age: 67 Year
  Sex: Male

DRUGS (1)
  1. CAPECITABINE 500 MG TABLET TEVA [Suspect]
     Active Substance: CAPECITABINE
     Indication: COLON CANCER
     Dosage: 14DAYS EVERY 21 DAYS
     Route: 048
     Dates: start: 20140719

REACTIONS (4)
  - Chapped lips [None]
  - Dehydration [None]
  - Dry skin [None]
  - Diarrhoea [None]

NARRATIVE: CASE EVENT DATE: 20140909
